FAERS Safety Report 7724360-9 (Version None)
Quarter: 2011Q3

REPORT INFORMATION
  Report Type: 
  Country: None (occurrence: None)
  Receive Date: 20110901
  Receipt Date: 20110823
  Transmission Date: 20111222
  Serious: Yes (Hospitalization)
  Sender: FDA-Public Use
  Company Number: US-ASTRAZENECA-2011SE11057

PATIENT
  Age: 67 Year
  Sex: Female

DRUGS (3)
  1. XOPENEX [Concomitant]
  2. FORTEO [Concomitant]
  3. SYMBICORT [Suspect]
     Route: 055

REACTIONS (3)
  - SPINAL COMPRESSION FRACTURE [None]
  - CHRONIC OBSTRUCTIVE PULMONARY DISEASE [None]
  - TREMOR [None]
